FAERS Safety Report 18799521 (Version 1)
Quarter: 2021Q1

REPORT INFORMATION
  Report Type: Spontaneous
  Country: KR (occurrence: KR)
  Receive Date: 20210128
  Receipt Date: 20210128
  Transmission Date: 20210419
  Serious: Yes (Life-Threatening, Hospitalization)
  Sender: FDA-Public Use
  Company Number: KR-BAUSCH-BL-2021-001899

PATIENT
  Age: 13 Year
  Sex: Female

DRUGS (1)
  1. D?PENICILLAMINE [Suspect]
     Active Substance: PENICILLAMINE
     Indication: HEPATO-LENTICULAR DEGENERATION
     Dosage: THE PATIENT HAD BEEN ON SUSPECT FOR FIVE YEARS
     Route: 065
     Dates: start: 2012, end: 2017

REACTIONS (2)
  - Pulmonary renal syndrome [Recovering/Resolving]
  - Anti-neutrophil cytoplasmic antibody positive vasculitis [Recovering/Resolving]

NARRATIVE: CASE EVENT DATE: 201709
